FAERS Safety Report 20481515 (Version 2)
Quarter: 2022Q1

REPORT INFORMATION
  Report Type: Spontaneous
  Country: JP (occurrence: JP)
  Receive Date: 20220216
  Receipt Date: 20220303
  Transmission Date: 20220423
  Serious: Yes (Life-Threatening, Other)
  Sender: FDA-Public Use
  Company Number: DEX 2022-0030(0)

PATIENT
  Age: 81 Year
  Sex: Male

DRUGS (6)
  1. DEXMEDETOMIDINE HYDROCHLORIDE [Suspect]
     Active Substance: DEXMEDETOMIDINE HYDROCHLORIDE
     Indication: Sedative therapy
     Dosage: LOADING DOSE (5.8 UG/KG,1 HR)
     Route: 042
  2. DEXMEDETOMIDINE HYDROCHLORIDE [Suspect]
     Active Substance: DEXMEDETOMIDINE HYDROCHLORIDE
     Dosage: A MAINTENANCE DOSE (0.58 UG/KG, 1 HR)
     Route: 042
  3. DEXMEDETOMIDINE HYDROCHLORIDE [Suspect]
     Active Substance: DEXMEDETOMIDINE HYDROCHLORIDE
     Dosage: DECREASED DOSE (0.36 UG/KG, 1 HR)
     Route: 042
  4. DEXMEDETOMIDINE HYDROCHLORIDE [Suspect]
     Active Substance: DEXMEDETOMIDINE HYDROCHLORIDE
     Dosage: DECREASED DOSE (0.07 UG/KG, 1 HR)
     Route: 042
  5. MIDAZOLAM [Concomitant]
     Active Substance: MIDAZOLAM
     Indication: Premedication
     Dosage: 2 MILLIGRAM
     Route: 065
  6. PENTAZOCINE [Concomitant]
     Active Substance: PENTAZOCINE
     Indication: Premedication
     Dosage: 7.5 MILLIGRAM
     Route: 065

REACTIONS (3)
  - Bradycardia [Recovered/Resolved]
  - Cardiac arrest [Recovered/Resolved]
  - Stress cardiomyopathy [Unknown]
